FAERS Safety Report 7592424-9 (Version None)
Quarter: 2011Q3

REPORT INFORMATION
  Report Type: 
  Country: None (occurrence: None)
  Receive Date: 20110706
  Receipt Date: 20110626
  Transmission Date: 20111222
  Serious: Yes (Other)
  Sender: FDA-Public Use
  Company Number: US-NOVOPROD-330779

PATIENT
  Age: 48 Year
  Sex: Female

DRUGS (1)
  1. NOVOLOG [Suspect]
     Indication: PRODUCT USED FOR UNKNOWN INDICATION

REACTIONS (2)
  - EYE DISORDER [None]
  - CEREBROVASCULAR ACCIDENT [None]
